FAERS Safety Report 6360619-8 (Version None)
Quarter: 2009Q3

REPORT INFORMATION
  Report Type: 
  Country: None (occurrence: None)
  Receive Date: 20090915
  Receipt Date: 20090824
  Transmission Date: 20100115
  Serious: Yes (Life-Threatening, Other)
  Sender: FDA-Public Use
  Company Number: AUR-APL-2009-00579

PATIENT
  Age: 65 Year
  Sex: Female
  Weight: 99.7913 kg

DRUGS (3)
  1. METOPROLOL SUCCINATE [Suspect]
     Indication: CARDIAC DISORDER
  2. DIPHENHYDRAMINE HCL [Suspect]
     Indication: HYPERSENSITIVITY
     Dosage: BID
     Dates: start: 19800101, end: 20030101
  3. MONTELUKAST SODIUM [Suspect]
     Dosage: ORAL
     Route: 048

REACTIONS (3)
  - AMNESIA [None]
  - CARDIAC DISORDER [None]
  - CONVULSION [None]
